FAERS Safety Report 11789895 (Version 3)
Quarter: 2016Q1

REPORT INFORMATION
  Report Type: Spontaneous
  Country: JP (occurrence: JP)
  Receive Date: 20151201
  Receipt Date: 20160126
  Transmission Date: 20160525
  Serious: Yes (Hospitalization, Disabling)
  Sender: FDA-Public Use
  Company Number: JP-B.I. PHARMACEUTICALS,INC./RIDGEFIELD-2015-BI-65877NB

PATIENT
  Age: 34 Year
  Sex: Female
  Weight: 38.2 kg

DRUGS (5)
  1. LANDSEN [Suspect]
     Active Substance: CLONAZEPAM
     Indication: AUTONOMIC SEIZURE
     Dosage: 0.25 MG
     Route: 048
     Dates: start: 20150710, end: 20150729
  2. LAMICTAL [Suspect]
     Active Substance: LAMOTRIGINE
     Indication: BIPOLAR DISORDER
     Dosage: 25 MG
     Route: 048
     Dates: start: 20150710, end: 20150729
  3. LYRICA [Suspect]
     Active Substance: PREGABALIN
     Indication: FIBROMYALGIA
     Dosage: 50 MG
     Route: 048
     Dates: start: 20150710, end: 20150729
  4. BI-SIFROL [Suspect]
     Active Substance: PRAMIPEXOLE
     Indication: RESTLESS LEGS SYNDROME
     Dosage: 0.25 MG
     Route: 048
     Dates: start: 20150710, end: 20150729
  5. STRATTERA [Suspect]
     Active Substance: ATOMOXETINE HYDROCHLORIDE
     Indication: ATTENTION DEFICIT/HYPERACTIVITY DISORDER
     Dosage: 20 MG
     Route: 048
     Dates: start: 20150710, end: 20150729

REACTIONS (1)
  - Stevens-Johnson syndrome [Recovered/Resolved with Sequelae]

NARRATIVE: CASE EVENT DATE: 20150726
